FAERS Safety Report 5373929-8 (Version None)
Quarter: 2007Q2

REPORT INFORMATION
  Report Type: 
  Country: None (occurrence: None)
  Receive Date: 20070627
  Receipt Date: 20070212
  Transmission Date: 20071010
  Serious: Yes (Death, Hospitalization)
  Sender: FDA-Public Use
  Company Number: 482408

PATIENT
  Age: 61 Year
  Sex: Female

DRUGS (1)
  1. XELODA [Suspect]
     Indication: BREAST CANCER METASTATIC

REACTIONS (5)
  - BREAST CANCER METASTATIC [None]
  - DEHYDRATION [None]
  - HYPOTENSION [None]
  - METASTASES TO BONE [None]
  - METASTASES TO LIVER [None]
